FAERS Safety Report 8762849 (Version 1)
Quarter: 2012Q4

REPORT INFORMATION
  Report Type: 
  Country: US (occurrence: US)
  Receive Date: 20120828
  Receipt Date: 20120828
  Transmission Date: 20130627
  Serious: No
  Sender: FDA-Public Use
  Company Number: US-PFIZER INC-2012207899

PATIENT
  Age: 78 Year
  Sex: Female
  Weight: 57 kg

DRUGS (2)
  1. ADVIL [Suspect]
     Indication: TENDONITIS
     Dosage: 400 mg, 2x/day
     Route: 048
     Dates: start: 201207
  2. ADVIL [Concomitant]
     Indication: HEADACHE
     Dosage: UNK, as needed

REACTIONS (2)
  - Constipation [Unknown]
  - Nervousness [Unknown]
